FAERS Safety Report 6154245-3 (Version None)
Quarter: 2009Q2

REPORT INFORMATION
  Report Type: 
  Country: None (occurrence: None)
  Receive Date: 20090414
  Receipt Date: 20090406
  Transmission Date: 20091009
  Serious: Yes (Hospitalization)
  Sender: FDA-Public Use
  Company Number: US-ABBOTT-09P-163-0566708-00

PATIENT
  Sex: Male
  Weight: 63.56 kg

DRUGS (23)
  1. ZEMPLAR [Suspect]
     Indication: HYPERPARATHYROIDISM
     Dates: start: 20081125
  2. COREG [Concomitant]
     Indication: IMPLANTABLE DEFIBRILLATOR INSERTION
  3. COREG [Concomitant]
     Indication: CARDIAC FAILURE
  4. LANOXIN [Concomitant]
     Indication: CARDIAC FAILURE
  5. DIOVAN [Concomitant]
     Indication: CARDIAC DISORDER
  6. NORVASC [Concomitant]
     Indication: HYPERTENSION
  7. PLAVIX [Concomitant]
     Indication: CEREBROVASCULAR ACCIDENT
  8. PLAVIX [Concomitant]
     Indication: CORONARY ARTERY BYPASS
  9. ASPIRIN [Concomitant]
     Indication: CEREBROVASCULAR ACCIDENT
  10. LIPITOR [Concomitant]
     Indication: CEREBROVASCULAR ACCIDENT
  11. LIPITOR [Concomitant]
     Indication: CARDIAC DISORDER
  12. PREVACID [Concomitant]
     Indication: DYSPEPSIA
  13. FUROSEMIDE [Concomitant]
     Indication: OEDEMA
  14. SODIUM BICARB [Concomitant]
     Indication: RENAL DISORDER
  15. FEOSOL [Concomitant]
     Indication: ANAEMIA
  16. MULTI-VITAMIN [Concomitant]
     Indication: DRUG USE FOR UNKNOWN INDICATION
  17. TEMAZEPAM [Concomitant]
     Indication: INSOMNIA
  18. LEXAPRO [Concomitant]
     Indication: DEPRESSION
  19. LEVEMIR [Concomitant]
     Indication: DIABETES MELLITUS
  20. LEVEMIR [Concomitant]
     Dates: start: 20090401
  21. HUMALOG [Concomitant]
     Indication: DIABETES MELLITUS
     Dosage: 3 IN 1 DAY-DEPENDING ON SLIDING SCALE
  22. OXYGEN [Concomitant]
     Indication: CHRONIC OBSTRUCTIVE PULMONARY DISEASE
     Dosage: 5 LITERS AT NIGHT AND 4 LITERS WITH ACTIVITY
  23. ARANESP [Concomitant]
     Indication: ANAEMIA
     Dosage: 1 SHOT EVERY 2 WEEKS

REACTIONS (9)
  - ABDOMINAL PAIN UPPER [None]
  - DYSPNOEA [None]
  - HYPOPHAGIA [None]
  - INSOMNIA [None]
  - OESOPHAGITIS [None]
  - PAINFUL DEFAECATION [None]
  - POLYP [None]
  - PULMONARY OEDEMA [None]
  - RASH [None]
